FAERS Safety Report 6360267-X (Version None)
Quarter: 2009Q3

REPORT INFORMATION
  Report Type: 
  Country: None (occurrence: None)
  Receive Date: 20090917
  Receipt Date: 20090908
  Transmission Date: 20100115
  Serious: Yes (Hospitalization)
  Sender: FDA-Public Use
  Company Number: FR-AMGEN-QUU363526

PATIENT
  Sex: Female
  Weight: 80 kg

DRUGS (19)
  1. NEULASTA [Suspect]
     Indication: DRUG USE FOR UNKNOWN INDICATION
     Route: 058
     Dates: start: 20090729, end: 20090729
  2. LOVENOX [Suspect]
     Route: 058
     Dates: start: 20090701
  3. DIFFU K [Concomitant]
     Dates: start: 20090415
  4. MOPRAL [Concomitant]
     Route: 042
     Dates: start: 20090731, end: 20090810
  5. LYRICA [Concomitant]
     Dates: start: 20090424
  6. CALCIPARINE [Concomitant]
     Dates: start: 20090523, end: 20090701
  7. SOLU-MEDROL [Concomitant]
     Route: 042
     Dates: start: 20090731, end: 20090810
  8. LEVOTHYROXINE SODIUM [Concomitant]
  9. RIVOTRIL [Concomitant]
  10. EPITOMAX [Concomitant]
  11. IMOVANE [Concomitant]
  12. NICARDIPINE HCL [Concomitant]
  13. LANTUS [Concomitant]
  14. TRUSOPT [Concomitant]
  15. TRAVATAN [Concomitant]
  16. VENTOLIN [Concomitant]
  17. DOLIPRANE [Concomitant]
  18. CORTANCYL [Concomitant]
     Dates: start: 20090810
  19. LANSOPRAZOLE [Concomitant]
     Dates: start: 20090810

REACTIONS (1)
  - THROMBOCYTOPENIA [None]
